FAERS Safety Report 8571306-X (Version None)
Quarter: 2012Q3

REPORT INFORMATION
  Report Type: 
  Country: None (occurrence: None)
  Receive Date: 20120806
  Receipt Date: 20120727
  Transmission Date: 20120928
  Serious: Yes (Other)
  Sender: FDA-Public Use
  Company Number: US-CELGENEUS-163-21880-12073270

PATIENT
  Sex: Male

DRUGS (5)
  1. REVLIMID [Suspect]
     Dosage: 20 MILLIGRAM
     Route: 048
     Dates: start: 20120101
  2. LEUKINE [Concomitant]
     Indication: NEUTROPENIA
     Dosage: 500 MICROGRAM
     Route: 058
     Dates: start: 20100726
  3. REVLIMID [Suspect]
     Dosage: 5 MILLIGRAM
     Route: 048
     Dates: start: 20090701, end: 20120101
  4. REVLIMID [Suspect]
     Dosage: 20 MILLIGRAM
     Route: 048
     Dates: start: 20120601, end: 20120101
  5. THALOMID [Suspect]
     Dosage: 50 MILLIGRAM
     Dates: start: 20090701

REACTIONS (2)
  - DRUG INTOLERANCE [None]
  - PROSTATIC SPECIFIC ANTIGEN INCREASED [None]
